FAERS Safety Report 18499909 (Version 2)
Quarter: 2020Q4

REPORT INFORMATION
  Report Type: Report from Study
  Country: None (occurrence: CA)
  Receive Date: 20201112
  Receipt Date: 20201217
  Transmission Date: 20210114
  Serious: Yes (Hospitalization)
  Sender: FDA-Public Use
  Company Number: CA-ABBVIE-20K-028-3647840-00

PATIENT
  Age: 15 Year
  Sex: Female
  Weight: 61.3 kg

DRUGS (2)
  1. LUPRON DEPOT [Suspect]
     Active Substance: LEUPROLIDE ACETATE
     Indication: GENDER REASSIGNMENT THERAPY
     Route: 030
     Dates: start: 202011, end: 2020
  2. LUPRON DEPOT [Suspect]
     Active Substance: LEUPROLIDE ACETATE
     Indication: TRANS-SEXUALISM
     Route: 030
     Dates: start: 202007, end: 2020

REACTIONS (5)
  - Suicide attempt [Recovered/Resolved]
  - Major depression [Unknown]
  - Off label use [Unknown]
  - Mental impairment [Unknown]
  - Suicide attempt [Recovered/Resolved]

NARRATIVE: CASE EVENT DATE: 2020
